FAERS Safety Report 6758550-9 (Version None)
Quarter: 2010Q2

REPORT INFORMATION
  Report Type: 
  Country: None (occurrence: None)
  Receive Date: 20100607
  Receipt Date: 20100601
  Transmission Date: 20101027
  Serious: Yes (Other)
  Sender: FDA-Public Use
  Company Number: US-JNJFOC-20100502445

PATIENT
  Age: 1 Year
  Sex: Male
  Weight: 9.07 kg

DRUGS (4)
  1. CONCENTRATED TYLENOL INFANT DROPS [Suspect]
  2. CONCENTRATED TYLENOL INFANT DROPS [Suspect]
     Indication: PYREXIA
  3. CONCENTRATED MOTRIN INFANTS DROPS [Suspect]
     Route: 048
  4. CONCENTRATED MOTRIN INFANTS DROPS [Suspect]
     Indication: PYREXIA
     Route: 048

REACTIONS (2)
  - BODY TEMPERATURE INCREASED [None]
  - PRODUCT QUALITY ISSUE [None]
